FAERS Safety Report 9916016 (Version 1)
Quarter: 2014Q1

REPORT INFORMATION
  Report Type: Spontaneous
  Country: US (occurrence: None)
  Receive Date: 20140220
  Receipt Date: 20140220
  Transmission Date: 20141002
  Serious: Yes (Hospitalization)
  Sender: FDA-Public Use
  Company Number: None

PATIENT
  Age: 64 Year
  Sex: Male
  Weight: 47.85 kg

DRUGS (9)
  1. RITUXIMAB [Suspect]
     Indication: IMMUNOGLOBULIN G4 RELATED SCLEROSING DISEASE
     Dosage: 1 GRAM  X 1  IV
     Route: 042
     Dates: start: 20121003
  2. AVODART [Concomitant]
  3. BUDESONIDE NEBULIZER? [Concomitant]
  4. COLAZAL [Concomitant]
  5. HYZAAR [Concomitant]
  6. SIMVASTATIN [Concomitant]
  7. UROXATRAL [Concomitant]
  8. TOPROL [Concomitant]
  9. ZOMIG [Concomitant]

REACTIONS (1)
  - Sinusitis [None]
